FAERS Safety Report 16454232 (Version 1)
Quarter: 2019Q2

REPORT INFORMATION
  Report Type: Spontaneous
  Country: PL (occurrence: PL)
  Receive Date: 20190619
  Receipt Date: 20190619
  Transmission Date: 20190711
  Serious: Yes (Hospitalization, Other)
  Sender: FDA-Public Use
  Company Number: PL-MYLANLABS-2019M1057208

PATIENT
  Age: 3 Decade
  Sex: Male

DRUGS (6)
  1. OLANZAPINE. [Suspect]
     Active Substance: OLANZAPINE
     Indication: PSYCHIATRIC SYMPTOM
     Dosage: DOSAGE FORM: UNSPECIFIED
     Route: 048
  2. RISPOLEPT [Suspect]
     Active Substance: RISPERIDONE
     Indication: PSYCHIATRIC SYMPTOM
     Dosage: DOSAGE FORM: UNSPECIFIED
     Route: 048
  3. AMPHETAMINE [Suspect]
     Active Substance: AMPHETAMINE
     Indication: PRODUCT USED FOR UNKNOWN INDICATION
     Dosage: DOSAGE FORM: UNSPECIFIED
     Route: 065
  4. MARIJUANA [Suspect]
     Active Substance: CANNABIS SATIVA SUBSP. INDICA TOP
     Indication: PRODUCT USED FOR UNKNOWN INDICATION
     Dosage: DOSAGE FORM: UNSPECIFIED
     Route: 065
  5. DEPAKINE                           /00228501/ [Suspect]
     Active Substance: VALPROIC ACID
     Indication: PSYCHIATRIC SYMPTOM
     Dosage: DOSAGE FORM: UNSPECIFIED
     Route: 065
  6. RISPOLEPT CONSTA [Suspect]
     Active Substance: RISPERIDONE
     Indication: PSYCHIATRIC SYMPTOM
     Dosage: 50 MILLIGRAM
     Route: 030
     Dates: start: 2012, end: 201212

REACTIONS (7)
  - Mixed delusion [Unknown]
  - Mental disorder [Unknown]
  - Poor quality product administered [Unknown]
  - Drug abuse [Unknown]
  - Product storage error [Unknown]
  - Central nervous system injury [Unknown]
  - Product complaint [Unknown]

NARRATIVE: CASE EVENT DATE: 2012
